FAERS Safety Report 20797063 (Version 1)
Quarter: 2022Q2

REPORT INFORMATION
  Report Type: Spontaneous
  Country: CN (occurrence: CN)
  Receive Date: 20220506
  Receipt Date: 20220506
  Transmission Date: 20220721
  Serious: Yes (Hospitalization, Other)
  Sender: FDA-Public Use
  Company Number: CN-009507513-2205CHN000035

PATIENT
  Age: 69 Year
  Sex: Female

DRUGS (3)
  1. PEMBROLIZUMAB [Suspect]
     Active Substance: PEMBROLIZUMAB
     Indication: Endometrial cancer metastatic
     Dosage: 5 DOSES
     Dates: start: 2020, end: 2020
  2. PACLITAXEL [Concomitant]
     Active Substance: PACLITAXEL
     Indication: Endometrial cancer metastatic
     Dosage: 5 DOSES
     Dates: start: 2020, end: 2020
  3. CARBOPLATIN [Concomitant]
     Active Substance: CARBOPLATIN
     Indication: Endometrial cancer metastatic
     Dosage: 5 DOSES
     Dates: start: 2020, end: 2020

REACTIONS (3)
  - Immune-mediated enterocolitis [Recovered/Resolved]
  - Atrial fibrillation [Recovered/Resolved]
  - Product use in unapproved indication [Unknown]

NARRATIVE: CASE EVENT DATE: 20200101
